FAERS Safety Report 9032118 (Version 1)
Quarter: 2013Q1

REPORT INFORMATION
  Report Type: Report from Study
  Country: CA (occurrence: CA)
  Receive Date: 20130122
  Receipt Date: 20130122
  Transmission Date: 20140127
  Serious: Yes (Other)
  Sender: FDA-Public Use
  Company Number: CA-JNJFOC-20130107839

PATIENT
  Sex: Female
  Weight: 51.26 kg

DRUGS (4)
  1. REMICADE [Suspect]
     Indication: COLITIS ULCERATIVE
     Route: 042
     Dates: start: 2010
  2. REMICADE [Suspect]
     Indication: COLITIS ULCERATIVE
     Route: 042
     Dates: start: 2011
  3. IMURAN [Concomitant]
     Route: 065
  4. ALL OTHER THERAPEUTICS [Concomitant]
     Route: 065

REACTIONS (2)
  - Executive dysfunction [Unknown]
  - Colitis ulcerative [Unknown]
